FAERS Safety Report 7538976-6 (Version None)
Quarter: 2011Q2

REPORT INFORMATION
  Report Type: 
  Country: None (occurrence: None)
  Receive Date: 20110610
  Receipt Date: 20110531
  Transmission Date: 20111010
  Serious: Yes (Hospitalization, Other)
  Sender: FDA-Public Use
  Company Number: JP-JNJFOC-20110203181

PATIENT
  Sex: Female
  Weight: 46 kg

DRUGS (10)
  1. DOXIL [Suspect]
     Indication: OVARIAN CANCER RECURRENT
     Route: 042
     Dates: start: 20101227
  2. NAPROXEN [Concomitant]
     Indication: OVARIAN CANCER RECURRENT
     Route: 048
     Dates: start: 20100430
  3. AZUNOL [Concomitant]
     Indication: OVARIAN CANCER RECURRENT
     Route: 049
     Dates: start: 20101227, end: 20110128
  4. ALOXI [Concomitant]
     Indication: OVARIAN CANCER RECURRENT
     Route: 041
     Dates: start: 20100608, end: 20110128
  5. DECADRON [Concomitant]
     Indication: OVARIAN CANCER RECURRENT
     Route: 041
     Dates: start: 20100601, end: 20110128
  6. EMEND [Concomitant]
     Indication: OVARIAN CANCER RECURRENT
     Route: 048
     Dates: start: 20100712, end: 20110128
  7. SELBEX [Concomitant]
     Indication: OVARIAN CANCER RECURRENT
     Route: 048
     Dates: start: 20090417
  8. FAMOTIDINE [Concomitant]
     Indication: OVARIAN CANCER RECURRENT
     Route: 048
     Dates: start: 20100226
  9. DOXIL [Suspect]
     Route: 042
     Dates: start: 20110128
  10. ADEROXAL [Concomitant]
     Indication: OVARIAN CANCER RECURRENT
     Dosage: DOSE= 0.6 G
     Route: 048
     Dates: start: 20101227, end: 20110128

REACTIONS (2)
  - INTERSTITIAL LUNG DISEASE [None]
  - HAEMOGLOBIN DECREASED [None]
